FAERS Safety Report 21550629 (Version 1)
Quarter: 2022Q4

REPORT INFORMATION
  Report Type: Spontaneous
  Country: US (occurrence: None)
  Receive Date: 20221103
  Receipt Date: 20221103
  Transmission Date: 20230113
  Serious: Yes (Hospitalization)
  Sender: FDA-Public Use
  Company Number: None

PATIENT
  Age: 48 Year
  Sex: Male

DRUGS (1)
  1. XIFAXAN [Suspect]
     Active Substance: RIFAXIMIN

REACTIONS (4)
  - Blood potassium increased [None]
  - Oedema peripheral [None]
  - Hypotension [None]
  - Liver disorder [None]

NARRATIVE: CASE EVENT DATE: 20221028
